FAERS Safety Report 13871151 (Version 2)
Quarter: 2017Q4

REPORT INFORMATION
  Report Type: Spontaneous
  Country: US (occurrence: US)
  Receive Date: 20170816
  Receipt Date: 20171030
  Transmission Date: 20180320
  Serious: No
  Sender: FDA-Public Use
  Company Number: US-BRISTOL-MYERS SQUIBB COMPANY-BMS-2017-072967

PATIENT
  Sex: Female
  Weight: 48.9 kg

DRUGS (1)
  1. YERVOY [Suspect]
     Active Substance: IPILIMUMAB
     Indication: MALIGNANT MELANOMA
     Dosage: 500 MG, Q3WK
     Route: 042
     Dates: start: 20170316

REACTIONS (1)
  - Hypothyroidism [Unknown]
